FAERS Safety Report 5552928-7 (Version None)
Quarter: 2007Q4

REPORT INFORMATION
  Report Type: 
  Country: None (occurrence: None)
  Receive Date: 20071211
  Receipt Date: 20071127
  Transmission Date: 20080405
  Serious: Yes (Other)
  Sender: FDA-Public Use
  Company Number: B0498769A

PATIENT

DRUGS (3)
  1. ALBUTEROL SULFATE [Suspect]
     Indication: ASTHMA
     Dosage: INHALED
     Route: 055
  2. GLUCOCORTICOID [Concomitant]
  3. IPRATROPIUM BROMIDE [Concomitant]

REACTIONS (1)
  - METABOLIC ACIDOSIS [None]
